FAERS Safety Report 8686218 (Version 6)
Quarter: 2013Q1

REPORT INFORMATION
  Report Type: Report from Study
  Country: FR (occurrence: FR)
  Receive Date: 20120726
  Receipt Date: 20130321
  Transmission Date: 20140127
  Serious: Yes (Hospitalization)
  Sender: FDA-Public Use
  Company Number: FR-ABBOTT-12P-056-0958837-00

PATIENT
  Age: 27 Year
  Sex: Female

DRUGS (7)
  1. HUMIRA [Suspect]
     Indication: CROHN^S DISEASE
     Route: 058
     Dates: start: 20090417, end: 20090417
  2. HUMIRA [Suspect]
     Route: 058
  3. HUMIRA [Suspect]
     Route: 058
     Dates: end: 20110912
  4. HUMIRA [Suspect]
     Route: 058
     Dates: start: 20111012
  5. LEVOTHYROX [Concomitant]
     Indication: HYPOTHYROIDISM
     Dates: start: 2004
  6. IMUREL [Concomitant]
     Indication: CROHN^S DISEASE
     Dates: start: 2000, end: 20091130
  7. AZATHIOPRINE [Concomitant]
     Indication: CROHN^S DISEASE

REACTIONS (1)
  - Malignant melanoma [Recovered/Resolved]
